FAERS Safety Report 8974093 (Version 1)
Quarter: 2012Q4

REPORT INFORMATION
  Report Type: Spontaneous
  Country: US (occurrence: None)
  Receive Date: 20121217
  Receipt Date: 20121217
  Transmission Date: 20130627
  Serious: Yes (Life-Threatening)
  Sender: FDA-Public Use
  Company Number: None

PATIENT
  Age: 54 Year
  Sex: Female
  Weight: 56.7 kg

DRUGS (1)
  1. LEVOFLOXACIN [Suspect]
     Indication: BRONCHITIS
     Dosage: 1 500mg once a day po
     Route: 048
     Dates: start: 20121211, end: 20121212

REACTIONS (4)
  - Nausea [None]
  - Dizziness [None]
  - Loss of consciousness [None]
  - Road traffic accident [None]
